FAERS Safety Report 9028966 (Version 1)
Quarter: 2013Q1

REPORT INFORMATION
  Report Type: Spontaneous
  Country: JP (occurrence: JP)
  Receive Date: 20130124
  Receipt Date: 20130124
  Transmission Date: 20140127
  Serious: Yes (Hospitalization)
  Sender: FDA-Public Use
  Company Number: JP-SANOFI-AVENTIS-2011SA013752

PATIENT
  Age: 62 Year
  Sex: Male
  Weight: 73 kg

DRUGS (11)
  1. PREDNISOLONE [Suspect]
     Indication: INTERSTITIAL LUNG DISEASE
     Route: 048
     Dates: start: 20110111, end: 20110212
  2. PREDNISOLONE [Suspect]
     Indication: INTERSTITIAL LUNG DISEASE
     Dosage: DOSE REDUCED
     Route: 065
     Dates: start: 201102
  3. PREDNISOLONE [Suspect]
     Indication: INTERSTITIAL LUNG DISEASE
     Route: 065
  4. METHYLPREDNISOLONE [Suspect]
     Indication: INTERSTITIAL LUNG DISEASE
     Route: 065
     Dates: start: 201102
  5. TAXOTERE [Suspect]
     Indication: PROSTATE CANCER
     Dosage: DAY 1
     Route: 041
     Dates: start: 20110111, end: 20110111
  6. TAXOTERE [Suspect]
     Indication: PROSTATE CANCER
     Route: 041
     Dates: start: 20110208, end: 20110208
  7. DECADRON PHOSPHATE [Concomitant]
     Dates: start: 20110111
  8. DECADRON PHOSPHATE [Concomitant]
     Dates: start: 20110208, end: 20110208
  9. ZOLADEX [Concomitant]
     Indication: HORMONE THERAPY
     Dates: start: 20090416
  10. BICALUTAMIDE [Concomitant]
     Indication: HORMONE THERAPY
     Dates: start: 20090416
  11. GRANISETRON [Concomitant]
     Dates: start: 20110208, end: 20110208

REACTIONS (18)
  - Diabetic coma [Unknown]
  - Blood glucose increased [Unknown]
  - Dyspnoea [Unknown]
  - Loss of consciousness [Unknown]
  - C-reactive protein increased [Unknown]
  - Blood pressure decreased [Unknown]
  - Metabolic acidosis [Unknown]
  - Blood potassium decreased [Unknown]
  - Blood bicarbonate decreased [Unknown]
  - Base excess decreased [Unknown]
  - Anion gap increased [Unknown]
  - PCO2 decreased [Recovered/Resolved]
  - Blood sodium increased [Unknown]
  - Interstitial lung disease [Recovered/Resolved]
  - Decreased appetite [Recovered/Resolved]
  - Pyrexia [Recovered/Resolved]
  - Leukopenia [Recovered/Resolved]
  - Respiratory failure [Unknown]
